FAERS Safety Report 15810134 (Version 1)
Quarter: 2019Q1

REPORT INFORMATION
  Report Type: Spontaneous
  Country: US (occurrence: US)
  Receive Date: 20190111
  Receipt Date: 20190111
  Transmission Date: 20190417
  Serious: No
  Sender: FDA-Public Use
  Company Number: US-ROCHE-2145382

PATIENT
  Sex: Female

DRUGS (2)
  1. RITUXAN [Suspect]
     Active Substance: RITUXIMAB
     Dosage: RECEIVED THE REMAINDER OF RITUXAN ;ONGOING: NO
     Route: 042
     Dates: start: 20180620
  2. RITUXAN [Suspect]
     Active Substance: RITUXIMAB
     Indication: PRODUCT USED FOR UNKNOWN INDICATION
     Dosage: SUPPOSE TO RECEIVE 1000MG, BUT ONLY RECIEVED 500MG ; ONGOING: NO
     Route: 042
     Dates: start: 20180619

REACTIONS (3)
  - Pruritus [Unknown]
  - Dyspnoea [Unknown]
  - Urticaria [Unknown]

NARRATIVE: CASE EVENT DATE: 20180619
